FAERS Safety Report 16871298 (Version 2)
Quarter: 2019Q4

REPORT INFORMATION
  Report Type: Spontaneous
  Country: NO (occurrence: NO)
  Receive Date: 20191001
  Receipt Date: 20191015
  Transmission Date: 20200122
  Serious: Yes (Death)
  Sender: FDA-Public Use
  Company Number: NO-ABBVIE-19K-122-2946169-00

PATIENT
  Age: 72 Year
  Sex: Male

DRUGS (1)
  1. DUODOPA [Suspect]
     Active Substance: CARBIDOPA\LEVODOPA
     Indication: PRODUCT USED FOR UNKNOWN INDICATION
     Dosage: 20 MG/ML 5 MG/ML
     Route: 050
     Dates: start: 201907

REACTIONS (1)
  - Death [Fatal]

NARRATIVE: CASE EVENT DATE: 201910
